FAERS Safety Report 16071296 (Version 20)
Quarter: 2022Q1

REPORT INFORMATION
  Report Type: Spontaneous
  Country: US (occurrence: US)
  Receive Date: 20190314
  Receipt Date: 20220330
  Transmission Date: 20220424
  Serious: Yes (Other)
  Sender: FDA-Public Use
  Company Number: US-PFIZER INC-2019105412

PATIENT
  Age: 61 Year
  Sex: Female
  Weight: 77 kg

DRUGS (5)
  1. IBRANCE [Suspect]
     Active Substance: PALBOCICLIB
     Indication: Breast cancer metastatic
     Dosage: 125 MG, CYCLIC (ONCE DAILY FOR 21 DAYS, 7 DAYS OFF)
     Route: 048
     Dates: start: 20181202
  2. IBRANCE [Suspect]
     Active Substance: PALBOCICLIB
     Dosage: 100 MG, CYCLIC (ONCE DAILY FOR 21 DAYS ON, 7 DAYS OFF)
     Route: 048
  3. IBRANCE [Suspect]
     Active Substance: PALBOCICLIB
     Dosage: 100 MG
  4. IBRANCE [Suspect]
     Active Substance: PALBOCICLIB
     Dosage: 75 MG
  5. FEMARA [Concomitant]
     Active Substance: LETROZOLE
     Indication: Breast cancer metastatic
     Dosage: UNK, DAILY (EVERYDAY)

REACTIONS (16)
  - Lower respiratory tract infection [Unknown]
  - Neoplasm progression [Unknown]
  - COVID-19 [Unknown]
  - Headache [Unknown]
  - White blood cell count decreased [Unknown]
  - Fatigue [Unknown]
  - Weight increased [Unknown]
  - Feeling abnormal [Unknown]
  - Burning sensation [Unknown]
  - Ageusia [Unknown]
  - Back pain [Unknown]
  - Oropharyngeal discomfort [Unknown]
  - White blood cell count abnormal [Unknown]
  - Red blood cell count abnormal [Unknown]
  - Full blood count abnormal [Unknown]
  - Neutrophil count decreased [Unknown]
